FAERS Safety Report 4688608-X (Version None)
Quarter: 2005Q2

REPORT INFORMATION
  Report Type: 
  Country: None (occurrence: None)
  Receive Date: 20050608
  Receipt Date: 20050322
  Transmission Date: 20051028
  Serious: No
  Sender: FDA-Public Use
  Company Number: 2005-BP-04775BP

PATIENT
  Age: 85 Year
  Sex: Female

DRUGS (8)
  1. SPIRIVA [Suspect]
     Indication: CHRONIC OBSTRUCTIVE PULMONARY DISEASE
     Dosage: 18 MCG (18 MCG, QD) , IH
     Route: 055
     Dates: start: 20050201
  2. SPIRIVA [Suspect]
     Indication: EMPHYSEMA
     Dosage: 18 MCG (18 MCG, QD) , IH
     Route: 055
     Dates: start: 20050201
  3. ADVAIR DISKUS 100/50 [Concomitant]
  4. LEVOXYL [Concomitant]
  5. PREMARIN [Concomitant]
  6. PREVACID [Concomitant]
  7. CALCIUM GLUCONATE [Concomitant]
  8. MIACALCIN [Concomitant]

REACTIONS (1)
  - ORAL PAIN [None]
